FAERS Safety Report 9745984 (Version 1)
Quarter: 2013Q4

REPORT INFORMATION
  Report Type: Spontaneous
  Country: ES (occurrence: ES)
  Receive Date: 20131211
  Receipt Date: 20131211
  Transmission Date: 20140711
  Serious: No
  Sender: FDA-Public Use
  Company Number: ES-B.I. PHARMACEUTICALS,INC./RIDGEFIELD-2013-BI-39760ES

PATIENT
  Age: 58 Year
  Sex: Male

DRUGS (4)
  1. TRAJENTA [Suspect]
     Indication: DIABETES MELLITUS
     Dates: end: 20131122
  2. DIURETIC [Concomitant]
     Indication: HYPERTENSION
  3. LORAZEPAM [Concomitant]
     Indication: SLEEP DISORDER
  4. METFORMIN [Concomitant]
     Indication: DIABETES MELLITUS
     Dosage: 0.5 ANZ

REACTIONS (2)
  - Lichen planus [Not Recovered/Not Resolved]
  - Rash [Not Recovered/Not Resolved]
